FAERS Safety Report 6303443-4 (Version None)
Quarter: 2009Q3

REPORT INFORMATION
  Report Type: 
  Country: None (occurrence: None)
  Receive Date: 20090810
  Receipt Date: 20090804
  Transmission Date: 20100115
  Serious: No
  Sender: FDA-Public Use
  Company Number: US-B.I. PHARMACEUTICALS,INC./RIDGEFIELD-2009-BP-09232BP

PATIENT
  Sex: Female

DRUGS (9)
  1. SPIRIVA [Suspect]
     Indication: DYSPNOEA
     Dosage: 18 MCG
     Route: 055
     Dates: start: 20090804
  2. NASONEX [Concomitant]
     Indication: MULTIPLE ALLERGIES
  3. TOPROL-XL [Concomitant]
     Indication: PROPHYLAXIS
  4. MICARDIS [Concomitant]
     Indication: PROPHYLAXIS
  5. PLAVIX [Concomitant]
     Indication: PROPHYLAXIS
  6. IMDUR [Concomitant]
     Indication: PROPHYLAXIS
  7. PREVACID [Concomitant]
     Indication: PROPHYLAXIS
  8. XYZAL [Concomitant]
     Indication: MULTIPLE ALLERGIES
  9. BONIVA [Concomitant]
     Indication: OSTEOPOROSIS

REACTIONS (1)
  - HEADACHE [None]
